FAERS Safety Report 9633613 (Version 1)
Quarter: 2013Q4

REPORT INFORMATION
  Report Type: Spontaneous
  Country: DE (occurrence: None)
  Receive Date: 20131017
  Receipt Date: 20131017
  Transmission Date: 20140711
  Serious: Yes (Hospitalization)
  Sender: FDA-Public Use
  Company Number: 1938890

PATIENT
  Age: 63 Year
  Sex: Female
  Weight: 86 kg

DRUGS (5)
  1. CARBOPLATIN [Suspect]
     Indication: OVARIAN CANCER
     Route: 042
  2. PACLITAXEL [Suspect]
     Indication: OVARIAN CANCER
     Route: 042
  3. DEXAMETHASONE [Concomitant]
  4. TAVEGIL [Concomitant]
  5. RANITIDINE [Concomitant]

REACTIONS (4)
  - Anxiety [None]
  - Feeling hot [None]
  - Flushing [None]
  - Petechiae [None]
